FAERS Safety Report 6038818-4 (Version None)
Quarter: 2009Q1

REPORT INFORMATION
  Report Type: 
  Country: None (occurrence: None)
  Receive Date: 20090115
  Receipt Date: 20080805
  Transmission Date: 20090719
  Serious: No
  Sender: FDA-Public Use
  Company Number: US-BAYER-200813383BCC

PATIENT
  Age: 85 Year
  Sex: Female
  Weight: 61 kg

DRUGS (5)
  1. ALEVE [Suspect]
     Indication: NECK PAIN
     Route: 048
     Dates: start: 20080701
  2. ALEVE [Suspect]
     Dosage: TOTAL DAILY DOSE: 220 MG  UNIT DOSE: 220 MG
     Route: 048
     Dates: start: 20080701
  3. CENTRUM SILVER [Concomitant]
  4. CITRACAL PLUS [Concomitant]
     Dosage: TOTAL DAILY DOSE: 2 DF  UNIT DOSE: 1 DF
  5. ASPIRIN [Concomitant]
     Dosage: TOTAL DAILY DOSE: 81 MG  UNIT DOSE: 81 MG

REACTIONS (1)
  - SOMNOLENCE [None]
